FAERS Safety Report 8839481 (Version 1)
Quarter: 2012Q4

REPORT INFORMATION
  Report Type: Spontaneous
  Country: US (occurrence: None)
  Receive Date: 20121012
  Receipt Date: 20121012
  Transmission Date: 20130627
  Serious: Yes (Other)
  Sender: FDA-Public Use
  Company Number: None

PATIENT
  Age: 36 Year
  Sex: Male
  Weight: 81.65 kg

DRUGS (1)
  1. OMEPRAZOLE [Suspect]
     Indication: GERD
     Dosage: 40mg   1 time per day

REACTIONS (7)
  - Headache [None]
  - Withdrawal syndrome [None]
  - Fear [None]
  - Muscular weakness [None]
  - Muscular weakness [None]
  - Dizziness [None]
  - Muscle disorder [None]
